FAERS Safety Report 7915382-3 (Version None)
Quarter: 2011Q4

REPORT INFORMATION
  Report Type: 
  Country: None (occurrence: None)
  Receive Date: 20111115
  Receipt Date: 20111109
  Transmission Date: 20120403
  Serious: Yes (Death)
  Sender: FDA-Public Use
  Company Number: PHHO2011US04422

PATIENT
  Sex: Male
  Weight: 76 kg

DRUGS (4)
  1. MULTI-VITAMINS [Concomitant]
  2. ACETAMINOPHEN [Concomitant]
     Indication: BACK PAIN
  3. RESTASIS [Concomitant]
     Indication: DRY EYE
  4. AFINITOR [Suspect]
     Indication: METASTATIC RENAL CELL CARCINOMA
     Dosage: 10 MG / DAY
     Route: 048
     Dates: start: 20100415, end: 20100903

REACTIONS (1)
  - RENAL CELL CARCINOMA [None]
